FAERS Safety Report 8392111 (Version 5)
Quarter: 2013Q1

REPORT INFORMATION
  Report Type: Spontaneous
  Country: US (occurrence: US)
  Receive Date: 20120206
  Receipt Date: 20130227
  Transmission Date: 20140127
  Serious: Yes (Hospitalization)
  Sender: FDA-Public Use
  Company Number: US-GLAXOSMITHKLINE-A0964649A

PATIENT
  Age: 55 Year
  Sex: Male
  Weight: 135.9 kg

DRUGS (1)
  1. AVANDAMET [Suspect]
     Indication: TYPE 2 DIABETES MELLITUS
     Dosage: 1TAB TWICE PER DAY
     Route: 048
     Dates: start: 200704, end: 20100222

REACTIONS (5)
  - Coronary artery occlusion [Recovering/Resolving]
  - Cardiac function disturbance postoperative [Unknown]
  - Coronary artery reocclusion [Unknown]
  - Vascular graft occlusion [Unknown]
  - Chest discomfort [Unknown]
